FAERS Safety Report 7949069-8 (Version None)
Quarter: 2011Q4

REPORT INFORMATION
  Report Type: 
  Country: None (occurrence: None)
  Receive Date: 20111130
  Receipt Date: 20110909
  Transmission Date: 20120403
  Serious: No
  Sender: FDA-Public Use
  Company Number: US-BRISTOL-MYERS SQUIBB COMPANY-16047219

PATIENT
  Age: 6 Decade
  Sex: Male

DRUGS (3)
  1. KOMBIGLYZE XR [Suspect]
     Dosage: 1 DF = 2.5/1000MG
  2. ONGLYZA [Concomitant]
  3. METFORMIN HCL [Concomitant]

REACTIONS (1)
  - GASTROINTESTINAL DISORDER [None]
